FAERS Safety Report 6171822-4 (Version None)
Quarter: 2009Q2

REPORT INFORMATION
  Report Type: 
  Country: None (occurrence: None)
  Receive Date: 20090429
  Receipt Date: 20090422
  Transmission Date: 20091009
  Serious: Yes (Death)
  Sender: FDA-Public Use
  Company Number: GB-ROCHE-624418

PATIENT
  Sex: Female
  Weight: 61.2 kg

DRUGS (3)
  1. CAPECITABINE [Suspect]
     Indication: COLORECTAL CANCER
     Route: 048
     Dates: start: 20090203, end: 20090304
  2. DIPYRIDAMOLE [Concomitant]
     Indication: CEREBROVASCULAR ACCIDENT PROPHYLAXIS
     Route: 048
     Dates: start: 20040101
  3. ATORVASTATIN [Concomitant]
     Route: 048
     Dates: start: 20040101

REACTIONS (1)
  - PULMONARY EMBOLISM [None]
